FAERS Safety Report 10374640 (Version 1)
Quarter: 2014Q3

REPORT INFORMATION
  Report Type: Spontaneous
  Country: US (occurrence: US)
  Receive Date: 20140811
  Receipt Date: 20140811
  Transmission Date: 20150326
  Serious: Yes (Other)
  Sender: FDA-Public Use
  Company Number: US-TEVA-428881USA

PATIENT
  Sex: Female

DRUGS (2)
  1. BENADRYL [Suspect]
     Active Substance: DIPHENHYDRAMINE HYDROCHLORIDE
  2. METOCLOPRAMIDE. [Suspect]
     Active Substance: METOCLOPRAMIDE

REACTIONS (22)
  - Disorientation [Unknown]
  - Hallucination [Unknown]
  - Insomnia [Unknown]
  - Fatigue [Unknown]
  - Depression [Unknown]
  - Malaise [Unknown]
  - Personality change [Unknown]
  - Dysarthria [Unknown]
  - Hypersensitivity [Unknown]
  - Agitation [Unknown]
  - Speech disorder [Unknown]
  - Headache [Unknown]
  - Convulsion [Unknown]
  - Heart rate irregular [Unknown]
  - Vision blurred [Unknown]
  - Abnormal behaviour [Unknown]
  - Amnesia [Unknown]
  - Disturbance in attention [Unknown]
  - Confusional state [Unknown]
  - Paresis [Unknown]
  - Feeling abnormal [Unknown]
  - Skin burning sensation [Unknown]
